FAERS Safety Report 8956109 (Version 1)
Quarter: 2012Q4

REPORT INFORMATION
  Report Type: 
  Country: US (occurrence: US)
  Receive Date: 20121210
  Receipt Date: 20121210
  Transmission Date: 20130627
  Serious: Yes (Other)
  Sender: FDA-Public Use
  Company Number: US-BRISTOL-MYERS SQUIBB COMPANY-17200122

PATIENT
  Age: 26 Year
  Sex: Female
  Weight: 88.43 kg

DRUGS (1)
  1. ABILIFY [Suspect]
     Indication: BIPOLAR DISORDER

REACTIONS (3)
  - Pregnancy [Unknown]
  - Psychotic disorder [Unknown]
  - Abortion induced [Unknown]
